FAERS Safety Report 8761371 (Version 1)
Quarter: 2012Q4

REPORT INFORMATION
  Report Type: 
  Country: JP (occurrence: JP)
  Receive Date: 20120830
  Receipt Date: 20120830
  Transmission Date: 20130627
  Serious: Yes (Other)
  Sender: FDA-Public Use
  Company Number: JP-PFIZER INC-2012211486

PATIENT
  Age: 57 Year
  Sex: Female

DRUGS (3)
  1. LIPITOR [Suspect]
     Indication: HYPERTRIGLYCERIDAEMIA
     Dosage: 5 mg, 1x/day
     Route: 048
     Dates: start: 20120809, end: 20120810
  2. SIMVASTATIN [Suspect]
     Indication: HYPERTRIGLYCERIDAEMIA
     Dosage: 5 mg, daily
     Route: 048
     Dates: start: 20120804, end: 20120808
  3. NORVASC [Concomitant]
     Dosage: UNK
     Dates: start: 20000817

REACTIONS (4)
  - Jaundice [Not Recovered/Not Resolved]
  - Cholestasis [Unknown]
  - Off label use [Unknown]
  - Abdominal pain [Unknown]
